FAERS Safety Report 7686028-7 (Version None)
Quarter: 2011Q3

REPORT INFORMATION
  Report Type: 
  Country: None (occurrence: None)
  Receive Date: 20110816
  Receipt Date: 20110809
  Transmission Date: 20111222
  Serious: Yes (Hospitalization, Other)
  Sender: FDA-Public Use
  Company Number: US-PFIZER INC-2011178510

PATIENT
  Sex: Female

DRUGS (1)
  1. PREMARIN [Suspect]
     Dosage: 1.25 UNK, UNK

REACTIONS (4)
  - CEREBROVASCULAR ACCIDENT [None]
  - BLINDNESS UNILATERAL [None]
  - CEREBRAL THROMBOSIS [None]
  - HEMIPARESIS [None]
